FAERS Safety Report 12582265 (Version 1)
Quarter: 2016Q3

REPORT INFORMATION
  Report Type: Spontaneous
  Country: US (occurrence: None)
  Receive Date: 20160721
  Receipt Date: 20160721
  Transmission Date: 20161109
  Serious: Yes (Hospitalization)
  Sender: FDA-Public Use
  Company Number: None

PATIENT
  Age: 84 Year
  Sex: Male

DRUGS (14)
  1. ASPIRIN. [Concomitant]
     Active Substance: ASPIRIN
  2. FLUTICASONE [Concomitant]
     Active Substance: FLUTICASONE\FLUTICASONE PROPIONATE
  3. MAGNESIUM [Concomitant]
     Active Substance: MAGNESIUM
  4. QVAR [Concomitant]
     Active Substance: BECLOMETHASONE DIPROPIONATE
  5. CALCIUM [Concomitant]
     Active Substance: CALCIUM
  6. SPIRONOLACT [Concomitant]
  7. FUROSEMIDE. [Concomitant]
     Active Substance: FUROSEMIDE
  8. BACLOFEN. [Concomitant]
     Active Substance: BACLOFEN
  9. OMEPRAZOLE. [Concomitant]
     Active Substance: OMEPRAZOLE
  10. ESBRIET [Suspect]
     Active Substance: PIRFENIDONE
     Indication: PULMONARY ARTERIAL HYPERTENSION
     Route: 048
     Dates: start: 20150305
  11. HYDROCODONE [Concomitant]
     Active Substance: HYDROCODONE
  12. VITAMIN D3 [Concomitant]
     Active Substance: CHOLECALCIFEROL
  13. TAMSULOSIN [Concomitant]
     Active Substance: TAMSULOSIN
  14. FLONASE [Concomitant]
     Active Substance: FLUTICASONE PROPIONATE

REACTIONS (9)
  - Epistaxis [None]
  - Anaemia [None]
  - Pulmonary hypertension [None]
  - Urinary tract infection [None]
  - Pneumonia [None]
  - Asthenia [None]
  - Idiopathic pulmonary fibrosis [None]
  - Cirrhosis alcoholic [None]
  - Dizziness [None]

NARRATIVE: CASE EVENT DATE: 20160702
